FAERS Safety Report 5449650-4 (Version None)
Quarter: 2007Q3

REPORT INFORMATION
  Report Type: 
  Country: None (occurrence: None)
  Receive Date: 20070910
  Receipt Date: 20070828
  Transmission Date: 20080115
  Serious: Yes (Death, Life-Threatening)
  Sender: FDA-Public Use
  Company Number: 263279

PATIENT
  Age: 68 Year
  Sex: Female
  Weight: 80 kg

DRUGS (21)
  1. NOVOSEVEN [Suspect]
     Indication: TRAUMATIC HAEMORRHAGE
     Dosage: INTRAVENOUS
     Route: 042
     Dates: start: 20070314, end: 20070314
  2. FENTANYL [Concomitant]
  3. VERSED [Concomitant]
  4. NARCAN [Concomitant]
  5. SUCCINYLCHOIN (SUXAMETHONIUM CHLORIDE) [Concomitant]
  6. ROCURONIUM (ROCURONIUM) [Concomitant]
  7. LASIX [Concomitant]
  8. MILRINONE (MILRINONE) [Concomitant]
  9. LEVOPHED (NOREPINEPHRINE RITARTRATE) [Concomitant]
  10. EPINEPHRINE [Concomitant]
  11. VASOPRESSIN (VASOPRESSIN) [Concomitant]
  12. RANITIDINE [Concomitant]
  13. VENTOLINE  /00139501/ (SALBUTAMOL) [Concomitant]
  14. ATROVENT [Concomitant]
  15. DIGOXIN [Concomitant]
  16. CEFTRIAXONE [Concomitant]
  17. AZITHROMYCIN [Concomitant]
  18. DALTEPARIIN (DALTEPARIN) [Concomitant]
  19. DECARDRON /00016001/ (DEXAMETHASONE) [Concomitant]
  20. MAGNESIUM (ALUMINIUM HYDROXIDE, MAGNESIUM HYDROXIDE) [Concomitant]
  21. HUMULIN /00646001/ (INSULIN HUMAN) [Concomitant]

REACTIONS (8)
  - BRADYCARDIA [None]
  - CARDIAC ARREST [None]
  - COUGH [None]
  - DYSKINESIA [None]
  - SINUS TACHYCARDIA [None]
  - TRANSFUSION REACTION [None]
  - VENTRICULAR FIBRILLATION [None]
  - VENTRICULAR TACHYCARDIA [None]
